FAERS Safety Report 9325707 (Version 2)
Quarter: 2013Q2

REPORT INFORMATION
  Report Type: Spontaneous
  Country: IL (occurrence: IL)
  Receive Date: 20130604
  Receipt Date: 20130610
  Transmission Date: 20140414
  Serious: Yes (Hospitalization, Congenital Anomaly, Other)
  Sender: FDA-Public Use
  Company Number: PHHY2013IL055602

PATIENT
  Sex: Male
  Weight: 2.69 kg

DRUGS (1)
  1. OXCARBAZEPINE [Suspect]
     Indication: EPILEPSY
     Dosage: MATERNAL DOSE 1400 MG DAILY, (650 MG MORNING AND 750 MG EVENING)
     Route: 064

REACTIONS (21)
  - Congenital aortic stenosis [Not Recovered/Not Resolved]
  - Bicuspid aortic valve [Not Recovered/Not Resolved]
  - Atrial septal defect [Not Recovered/Not Resolved]
  - Patent ductus arteriosus [Recovered/Resolved]
  - Congenital hydronephrosis [Recovering/Resolving]
  - Pelvi-ureteric obstruction [Unknown]
  - Neonatal respiratory distress syndrome [Recovering/Resolving]
  - Withdrawal syndrome [Unknown]
  - Feeding disorder neonatal [Unknown]
  - Regurgitation [Unknown]
  - Crying [Unknown]
  - Sneezing [Unknown]
  - Irritability [Unknown]
  - Tremor [Unknown]
  - Hyponatraemia [Recovered/Resolved]
  - Thrombocytopenia [Recovered/Resolved]
  - Apgar score low [Unknown]
  - Hypotonia [Unknown]
  - Neonatal respiratory depression [Unknown]
  - Premature baby [Unknown]
  - Foetal exposure during pregnancy [Unknown]
